FAERS Safety Report 9980684 (Version 2)
Quarter: 2014Q1

REPORT INFORMATION
  Report Type: Spontaneous
  Country: AU (occurrence: AU)
  Receive Date: 20140307
  Receipt Date: 20140307
  Transmission Date: 20141002
  Serious: Yes (Other)
  Sender: FDA-Public Use
  Company Number: AU-RANBAXY-2014RR-78523

PATIENT
  Age: 37 Year
  Sex: Female

DRUGS (3)
  1. CEFTRIAXONE [Suspect]
     Indication: UROSEPSIS
     Dosage: 1 G (17 MG/KG)
     Route: 042
  2. AMOXICILLIN/CLAVULANIC ACID [Suspect]
     Indication: CELLULITIS
     Dosage: UNK
     Route: 048
     Dates: start: 2011
  3. MEROPENEM [Concomitant]
     Indication: UROSEPSIS
     Dosage: 1 G EVERY 8 H
     Route: 065

REACTIONS (2)
  - Treatment failure [Recovered/Resolved]
  - Pathogen resistance [Not Recovered/Not Resolved]
